FAERS Safety Report 7261094-1 (Version None)
Quarter: 2011Q1

REPORT INFORMATION
  Report Type: 
  Country: None (occurrence: None)
  Receive Date: 20110130
  Receipt Date: 20101228
  Transmission Date: 20110831
  Serious: No
  Sender: FDA-Public Use
  Company Number: US-ABBOTT-10P-163-0694056-00

PATIENT
  Age: 22 Year
  Sex: Female

DRUGS (1)
  1. HUMIRA [Suspect]
     Indication: CROHN'S DISEASE
     Dates: start: 20100501, end: 20101227

REACTIONS (5)
  - RASH PUSTULAR [None]
  - RASH PAPULAR [None]
  - INFLUENZA LIKE ILLNESS [None]
  - TENDERNESS [None]
  - DECREASED APPETITE [None]
